FAERS Safety Report 8844357 (Version 2)
Quarter: 2012Q4

REPORT INFORMATION
  Report Type: 
  Country: US (occurrence: None)
  Receive Date: 20121017
  Receipt Date: 20121019
  Transmission Date: 20130627
  Serious: Yes (Other)
  Sender: FDA-Public Use
  Company Number: None

PATIENT
  Age: 57 Year
  Sex: Female
  Weight: 56.7 kg

DRUGS (3)
  1. METHYL PREDNISOLONE [Suspect]
     Indication: CARPAL TUNNEL SYNDROME
     Dosage: 2 injections
     Dates: start: 20120719, end: 20120719
  2. METHYL PREDNISOLONE [Suspect]
     Indication: TENDONITIS
     Dosage: 2 injections
     Dates: start: 20120719, end: 20120719
  3. DEPO MEDROL [Suspect]

REACTIONS (7)
  - Pain [None]
  - Pyrexia [None]
  - Chills [None]
  - Dysphagia [None]
  - Headache [None]
  - Myalgia [None]
  - Arthralgia [None]
